FAERS Safety Report 10477882 (Version 2)
Quarter: 2014Q3

REPORT INFORMATION
  Report Type: Spontaneous
  Country: US (occurrence: None)
  Receive Date: 20140924
  Receipt Date: 20140929
  Transmission Date: 20150326
  Serious: Yes (Death)
  Sender: FDA-Public Use
  Company Number: 2014-US-012016

PATIENT
  Age: 60 Year
  Sex: Female

DRUGS (3)
  1. PAXIL [Concomitant]
     Active Substance: PAROXETINE HYDROCHLORIDE
  2. FAZACLO [Suspect]
     Active Substance: CLOZAPINE
     Dates: start: 20140625
  3. BUSPAR (BUSPIRONE HYDROCHLORIDE) [Concomitant]

REACTIONS (3)
  - Oesophageal carcinoma [None]
  - Disease progression [None]
  - General physical health deterioration [None]
